FAERS Safety Report 19435945 (Version 5)
Quarter: 2022Q4

REPORT INFORMATION
  Report Type: Spontaneous
  Country: US (occurrence: US)
  Receive Date: 20210618
  Receipt Date: 20221103
  Transmission Date: 20230113
  Serious: Yes (Hospitalization, Other)
  Sender: FDA-Public Use
  Company Number: US-GILEAD-2021-0536301

PATIENT
  Age: 51 Year
  Sex: Male

DRUGS (5)
  1. VIREAD [Suspect]
     Active Substance: TENOFOVIR DISOPROXIL FUMARATE
     Indication: HIV infection
     Dosage: UNK
     Route: 065
     Dates: start: 20011101, end: 200706
  2. VIREAD [Suspect]
     Active Substance: TENOFOVIR DISOPROXIL FUMARATE
     Dosage: UNK
     Route: 048
     Dates: start: 2004, end: 201701
  3. TRUVADA [Suspect]
     Active Substance: EMTRICITABINE\TENOFOVIR DISOPROXIL FUMARATE
     Indication: HIV infection
     Dosage: UNK
     Route: 048
     Dates: start: 2004, end: 201701
  4. TRUVADA [Suspect]
     Active Substance: EMTRICITABINE\TENOFOVIR DISOPROXIL FUMARATE
     Dosage: UNK
     Route: 065
     Dates: start: 200706, end: 201205
  5. BIKTARVY [Concomitant]
     Active Substance: BICTEGRAVIR SODIUM\EMTRICITABINE\TENOFOVIR ALAFENAMIDE FUMARATE

REACTIONS (12)
  - Facial bones fracture [Recovered/Resolved]
  - Chronic kidney disease [Not Recovered/Not Resolved]
  - Osteonecrosis [Unknown]
  - Acute kidney injury [Recovered/Resolved]
  - Emotional distress [Unknown]
  - Anhedonia [Unknown]
  - Tooth loss [Not Recovered/Not Resolved]
  - Bone loss [Unknown]
  - Bone density abnormal [Unknown]
  - Bone density decreased [Unknown]
  - Anxiety [Unknown]
  - Pain [Unknown]

NARRATIVE: CASE EVENT DATE: 20100501
